FAERS Safety Report 9208270 (Version 1)
Quarter: 2013Q2

REPORT INFORMATION
  Report Type: Spontaneous
  Country: GB (occurrence: GB)
  Receive Date: 20130403
  Receipt Date: 20130403
  Transmission Date: 20140414
  Serious: Yes (Other)
  Sender: FDA-Public Use
  Company Number: GB-PFIZER INC-2013106426

PATIENT
  Sex: 0

DRUGS (1)
  1. EFEXOR XL [Suspect]
     Dosage: UNK

REACTIONS (1)
  - Ventricular hypertrophy [Unknown]
